FAERS Safety Report 17967403 (Version 1)
Quarter: 2020Q3

REPORT INFORMATION
  Report Type: Spontaneous
  Country: HR (occurrence: HR)
  Receive Date: 20200701
  Receipt Date: 20200701
  Transmission Date: 20201103
  Serious: Yes (Death, Life-Threatening, Hospitalization)
  Sender: FDA-Public Use
  Company Number: HR-TEVA-2020-HR-1792858

PATIENT
  Age: 78 Year
  Sex: Male
  Weight: 68 kg

DRUGS (2)
  1. CYRAMZA [Suspect]
     Active Substance: RAMUCIRUMAB
     Indication: GASTRIC CANCER
     Dosage: 8 MG / KG; ONE?TIME
     Route: 042
     Dates: start: 20180920, end: 20181004
  2. PACLITAXEL PLIVA [Suspect]
     Active Substance: PACLITAXEL
     Indication: GASTRIC CANCER
     Dosage: 80 MG / KG; ONE?TIME
     Route: 042
     Dates: start: 20180920, end: 20181004

REACTIONS (8)
  - Fournier^s gangrene [Fatal]
  - Necrotising fasciitis [Fatal]
  - Scrotal swelling [Fatal]
  - Localised oedema [Fatal]
  - Oedema peripheral [Fatal]
  - Abdominal pain [Fatal]
  - Malaise [Fatal]
  - Penile swelling [Fatal]

NARRATIVE: CASE EVENT DATE: 20181105
